FAERS Safety Report 23543869 (Version 1)
Quarter: 2024Q1

REPORT INFORMATION
  Report Type: Spontaneous
  Country: US (occurrence: US)
  Receive Date: 20240220
  Receipt Date: 20240220
  Transmission Date: 20240410
  Serious: No
  Sender: FDA-Public Use
  Company Number: US-BAYER-2024A017429

PATIENT
  Age: 50 Year
  Sex: Female
  Weight: 89.796 kg

DRUGS (2)
  1. GADAVIST [Suspect]
     Active Substance: GADOBUTROL
     Indication: Magnetic resonance imaging head
     Dosage: 9 ML, ONCE
     Route: 042
     Dates: start: 20240126
  2. GADAVIST [Suspect]
     Active Substance: GADOBUTROL
     Indication: Computerised tomogram head

REACTIONS (3)
  - Cough [None]
  - Rash erythematous [None]
  - Pruritus [None]

NARRATIVE: CASE EVENT DATE: 20240126
